FAERS Safety Report 5482366-7 (Version None)
Quarter: 2007Q4

REPORT INFORMATION
  Report Type: 
  Country: None (occurrence: None)
  Receive Date: 20071011
  Receipt Date: 20071010
  Transmission Date: 20080405
  Serious: Yes (Other)
  Sender: FDA-Public Use
  Company Number: A0686892A

PATIENT
  Age: 26 Year
  Sex: Female

DRUGS (1)
  1. BUPROPION HYDROCHLORIDE [Suspect]
     Indication: DEPRESSION
     Dosage: 100MG PER DAY
     Route: 048
     Dates: start: 20071001

REACTIONS (4)
  - FEELING JITTERY [None]
  - HALLUCINATION [None]
  - HEADACHE [None]
  - TREMOR [None]
